FAERS Safety Report 10547499 (Version 1)
Quarter: 2014Q4

REPORT INFORMATION
  Report Type: Spontaneous
  Country: US (occurrence: US)
  Receive Date: 20141028
  Receipt Date: 20141028
  Transmission Date: 20150529
  Serious: No
  Sender: FDA-Public Use
  Company Number: US-BIOGENIDEC-2014BI109847

PATIENT
  Sex: Female

DRUGS (1)
  1. TECFIDERA [Suspect]
     Active Substance: DIMETHYL FUMARATE
     Indication: RELAPSING-REMITTING MULTIPLE SCLEROSIS
     Route: 048
     Dates: start: 201303

REACTIONS (9)
  - Haemorrhagic diathesis [Unknown]
  - Abdominal discomfort [Not Recovered/Not Resolved]
  - Anxiety [Unknown]
  - Eye disorder [Recovered/Resolved]
  - White blood cell count decreased [Not Recovered/Not Resolved]
  - Optic neuritis [Recovered/Resolved]
  - Blindness [Recovered/Resolved]
  - Influenza like illness [Recovered/Resolved]
  - Flushing [Not Recovered/Not Resolved]

NARRATIVE: CASE EVENT DATE: 2013
